FAERS Safety Report 25196297 (Version 2)
Quarter: 2025Q4

REPORT INFORMATION
  Report Type: Spontaneous
  Country: EU (occurrence: EU)
  Receive Date: 20250415
  Receipt Date: 20251112
  Transmission Date: 20260118
  Serious: Yes (Hospitalization, Other)
  Sender: MERCK SHARP & DOHME LLC
  Company Number: None

PATIENT
  Age: 58 Year
  Sex: Female
  Weight: 75 kg

DRUGS (3)
  1. KEYTRUDA [Suspect]
     Active Substance: PEMBROLIZUMAB
     Indication: Bladder transitional cell carcinoma
     Route: 042
     Dates: start: 20250218
  2. PADCEV [Suspect]
     Active Substance: ENFORTUMAB VEDOTIN-EJFV
     Indication: Bladder transitional cell carcinoma
     Dosage: 20% DOSE REDUCTION
     Route: 042
     Dates: start: 20250311
  3. PADCEV [Suspect]
     Active Substance: ENFORTUMAB VEDOTIN-EJFV
     Indication: Bladder transitional cell carcinoma
     Route: 042
     Dates: start: 20250218, end: 20250310

REACTIONS (4)
  - Hepatic cytolysis [Unknown]
  - Asthenia [Not Recovered/Not Resolved]
  - Cholestasis [Not Recovered/Not Resolved]
  - Acute cholecystitis necrotic [Not Recovered/Not Resolved]

NARRATIVE: CASE EVENT DATE: 20250301
